FAERS Safety Report 8369693-0 (Version None)
Quarter: 2012Q1

REPORT INFORMATION
  Report Type: 
  Country: None (occurrence: None)
  Receive Date: 20120323
  Receipt Date: 20110119
  Transmission Date: 20120608
  Serious: Yes (Hospitalization)
  Sender: FDA-Public Use
  Company Number: 163-21880-1012247

PATIENT
  Age: 77 Year
  Sex: Male
  Weight: 89.4 kg

DRUGS (1)
  1. REVLIMID [Suspect]
     Indication: MULTIPLE MYELOMA
     Dosage: 15 MG, DAILY AT BEDTIME FOR 21 DAYS ON 28 DAY, P5 9KM, -O
     Route: 048
     Dates: start: 20101129

REACTIONS (1)
  - CATHETER SITE INFECTION [None]
